FAERS Safety Report 18159437 (Version 3)
Quarter: 2020Q3

REPORT INFORMATION
  Report Type: Other
  Country: CA (occurrence: CA)
  Receive Date: 20200818
  Receipt Date: 20200914
  Transmission Date: 20201103
  Serious: Yes (Other)
  Sender: FDA-Public Use
  Company Number: CA-APOTEX-2020AP015814

PATIENT
  Age: 66 Year
  Sex: Male

DRUGS (2)
  1. SALBUTAMOL [Suspect]
     Active Substance: ALBUTEROL
     Indication: PRODUCT USED FOR UNKNOWN INDICATION
     Dosage: 200 MICROGRAM
     Route: 065
  2. UMECLIDINIUM BROMIDE [Suspect]
     Active Substance: UMECLIDINIUM BROMIDE
     Indication: PRODUCT USED FOR UNKNOWN INDICATION
     Dosage: UNK
     Route: 065

REACTIONS (14)
  - Lung hyperinflation [Unknown]
  - Asthma [Unknown]
  - Productive cough [Unknown]
  - Abdominal distension [Unknown]
  - Alveolar lung disease [Unknown]
  - Central obesity [Unknown]
  - Dyspnoea [Unknown]
  - Angina pectoris [Unknown]
  - Therapeutic product effect incomplete [Unknown]
  - Bronchial obstruction [Unknown]
  - Intestinal obstruction [Unknown]
  - Abdominal pain [Unknown]
  - Blood count abnormal [Unknown]
  - Gastrointestinal sounds abnormal [Unknown]
